FAERS Safety Report 25323932 (Version 1)
Quarter: 2025Q2

REPORT INFORMATION
  Report Type: Spontaneous
  Country: JP (occurrence: JP)
  Receive Date: 20250516
  Receipt Date: 20250516
  Transmission Date: 20250716
  Serious: Yes (Hospitalization)
  Sender: PFIZER
  Company Number: JP-TAKEDA-2025TJP003980

PATIENT
  Age: 55 Year
  Sex: Male

DRUGS (1)
  1. ADCETRIS [Suspect]
     Active Substance: BRENTUXIMAB VEDOTIN
     Indication: Cutaneous T-cell lymphoma
     Dosage: UNK, MONTHLY
     Route: 042

REACTIONS (2)
  - Fracture [Recovered/Resolved]
  - Product dose omission issue [Unknown]
